FAERS Safety Report 6101081-X (Version None)
Quarter: 2009Q1

REPORT INFORMATION
  Report Type: 
  Country: None (occurrence: None)
  Receive Date: 20090227
  Receipt Date: 20090217
  Transmission Date: 20090719
  Serious: No
  Sender: FDA-Public Use
  Company Number: US025487

PATIENT
  Age: 80 Year
  Sex: Female
  Weight: 68.0396 kg

DRUGS (15)
  1. FENTORA [Suspect]
     Indication: HEADACHE
     Dosage: 300 UG  BUCCAL
     Route: 002
  2. FENTORA [Suspect]
     Indication: HEADACHE
     Dosage: 400 UG BUCCAL
     Route: 002
  3. FENTANYL-25 [Concomitant]
  4. MORPHINE [Concomitant]
  5. TOPAMAX [Concomitant]
  6. SINEMET [Concomitant]
  7. EVISTA [Concomitant]
  8. LEVOTHYROXINE SODIUM [Concomitant]
  9. MS CONTIN [Concomitant]
  10. GLUCOSAMINE [Concomitant]
  11. CALCIUM [Concomitant]
  12. PREVACID [Concomitant]
  13. FISH OIL [Concomitant]
  14. ASCORBIC ACID [Concomitant]
  15. DILAUDID [Concomitant]

REACTIONS (3)
  - CIRCUMSTANCE OR INFORMATION CAPABLE OF LEADING TO MEDICATION ERROR [None]
  - DRUG PRESCRIBING ERROR [None]
  - OFF LABEL USE [None]
